FAERS Safety Report 4907186-0 (Version None)
Quarter: 2006Q1

REPORT INFORMATION
  Report Type: 
  Country: None (occurrence: None)
  Receive Date: 20060207
  Receipt Date: 20060119
  Transmission Date: 20060701
  Serious: Yes (Hospitalization)
  Sender: FDA-Public Use
  Company Number: US200601003462

PATIENT
  Age: 82 Year
  Sex: Female

DRUGS (10)
  1. FORTEO [Suspect]
     Indication: OSTEOPOROSIS
     Dates: start: 20040401
  2. FORTEO [Concomitant]
  3. ZOCOR [Concomitant]
  4. IMDUR [Concomitant]
  5. ZOLOFT [Concomitant]
  6. NEXIUM [Concomitant]
  7. TRAZODONE HCL [Concomitant]
  8. CALCIUM CARBONATE (CALCIUM CARBONATE) [Concomitant]
  9. ERGOCALCIFEROL (VITAMIN D) (ERGOCALCIFEROL (VITAMIN D) [Concomitant]
  10. NORVASC /GRC/ (AMLODIPINE) [Concomitant]

REACTIONS (3)
  - DYSPNOEA [None]
  - LUNG INFECTION [None]
  - PHARMACEUTICAL PRODUCT COMPLAINT [None]
